FAERS Safety Report 13039121 (Version 1)
Quarter: 2016Q4

REPORT INFORMATION
  Report Type: Spontaneous
  Country: US (occurrence: US)
  Receive Date: 20161219
  Receipt Date: 20161219
  Transmission Date: 20170207
  Serious: Yes (Hospitalization, Other)
  Sender: FDA-Public Use
  Company Number: US-AMGEN-USASP2016177714

PATIENT
  Age: 42 Year
  Sex: Male

DRUGS (13)
  1. SENOKOT [Concomitant]
     Active Substance: SENNOSIDES
     Dosage: UNK
  2. ASPIRIN. [Concomitant]
     Active Substance: ASPIRIN
     Dosage: 325 MG, UNK
  3. LIPITOR [Concomitant]
     Active Substance: ATORVASTATIN CALCIUM
     Dosage: 40 MG, UNK
  4. VANCOMYCIN [Concomitant]
     Active Substance: VANCOMYCIN
     Dosage: 1 G, Q8H
  5. FLOLAN [Concomitant]
     Active Substance: EPOPROSTENOL SODIUM
     Dosage: UNK
  6. HEPARIN [Concomitant]
     Active Substance: HEPARIN SODIUM
     Dosage: 5000 UNITS, TID
  7. CORLANOR [Suspect]
     Active Substance: IVABRADINE HYDROCHLORIDE
     Indication: PRODUCT USED FOR UNKNOWN INDICATION
     Dosage: UNK
     Route: 065
  8. DOBUTAMINE [Concomitant]
     Active Substance: DOBUTAMINE\DOBUTAMINE HYDROCHLORIDE
     Dosage: UNK
  9. NOREPINEPHRINE [Concomitant]
     Active Substance: NOREPINEPHRINE\NOREPINEPHRINE BITARTRATE
     Dosage: UNK
  10. PEPCID [Concomitant]
     Active Substance: FAMOTIDINE
     Dosage: 20 MG, UNK
  11. DIGOXIN. [Concomitant]
     Active Substance: DIGOXIN
     Dosage: 125 MUG, UNK
  12. NOVOLOG [Concomitant]
     Active Substance: INSULIN ASPART
     Dosage: UNK
  13. ZOSYN [Concomitant]
     Active Substance: PIPERACILLIN SODIUM\TAZOBACTAM SODIUM
     Dosage: 3.375 G, TID
     Route: 042

REACTIONS (2)
  - Intentional product misuse [Unknown]
  - Acute respiratory failure [Unknown]
